FAERS Safety Report 4615076-6 (Version None)
Quarter: 2005Q1

REPORT INFORMATION
  Report Type: 
  Country: None (occurrence: None)
  Receive Date: 20050322
  Receipt Date: 20050317
  Transmission Date: 20050727
  Serious: Yes (Other)
  Sender: FDA-Public Use
  Company Number: PHRM2005FR01080

PATIENT
  Age: 75 Year
  Sex: Female

DRUGS (3)
  1. LAMISIL [Suspect]
     Indication: FUNGAL SKIN INFECTION
     Dosage: 250 MG, QD
     Route: 048
  2. LAMISIL [Suspect]
     Route: 061
  3. KESTINE [Concomitant]
     Indication: PRURITUS

REACTIONS (1)
  - ANAEMIA [None]
